FAERS Safety Report 9981259 (Version 1)
Quarter: 2014Q1

REPORT INFORMATION
  Report Type: Spontaneous
  Country: US (occurrence: None)
  Receive Date: 20140305
  Receipt Date: 20140305
  Transmission Date: 20141002
  Serious: Yes (Hospitalization, Other)
  Sender: FDA-Public Use
  Company Number: SYM-2014-18099

PATIENT
  Age: 64 Year
  Sex: Female

DRUGS (2)
  1. XENAZINE (TETRABENAZINE) (12.5 MILLIGRAM, TABLET) (TETRABENAZINE) [Suspect]
     Indication: HUNTINGTON^S DISEASE
     Route: 048
     Dates: start: 20131017
  2. AMANTADINE (AMANTADINE) (AMANTADINE) [Suspect]
     Indication: PRODUCT USED FOR UNKNOWN INDICATION
     Dates: start: 201401

REACTIONS (5)
  - Oedema peripheral [None]
  - Face oedema [None]
  - Oedema peripheral [None]
  - Dyspnoea [None]
  - Hypertension [None]
